FAERS Safety Report 11012332 (Version 1)
Quarter: 2015Q2

REPORT INFORMATION
  Report Type: Spontaneous
  Country: US (occurrence: None)
  Receive Date: 20150407
  Receipt Date: 20150407
  Transmission Date: 20150821
  Serious: Yes (Other)
  Sender: FDA-Public Use
  Company Number: LH201400261

PATIENT
  Age: 32 Year
  Sex: Female

DRUGS (8)
  1. TOCOPHEROL [Concomitant]
     Active Substance: TOCOPHEROL
  2. MAKENA [Suspect]
     Active Substance: HYDROXYPROGESTERONE CAPROATE
     Indication: PREMATURE LABOUR
     Dosage: 250 MG, ONCE WEEKLY, INTRAMUSCULAR
     Route: 030
     Dates: start: 20140806
  3. MAKENA [Suspect]
     Active Substance: HYDROXYPROGESTERONE CAPROATE
     Indication: OFF LABEL USE
     Dosage: 250 MG, ONCE WEEKLY, INTRAMUSCULAR
     Route: 030
     Dates: start: 20140806
  4. PRENATAL VITAMINS (ASCORBIC ACID, BIOTIN, MINERALS NOS, NICOTINIC ACID, RETINOL, TOCOPHEROL, VITAMIN B NOS, VITAMIN D NOS) [Concomitant]
  5. RETINOL [Concomitant]
     Active Substance: RETINOL
  6. NICOTINIC ACID [Concomitant]
     Active Substance: NIACIN
  7. VITMIN D NOS [Concomitant]
  8. VITAMIN B NOS [Concomitant]
     Active Substance: VITAMIN B

REACTIONS (2)
  - Off label use [None]
  - Premature rupture of membranes [None]

NARRATIVE: CASE EVENT DATE: 20140806
